FAERS Safety Report 10416592 (Version 1)
Quarter: 2014Q3

REPORT INFORMATION
  Report Type: Report from Study
  Country: BR (occurrence: BR)
  Receive Date: 20140828
  Receipt Date: 20140828
  Transmission Date: 20150326
  Serious: Yes (Hospitalization)
  Sender: FDA-Public Use
  Company Number: PHHY2014BR108261

PATIENT
  Sex: Female
  Weight: 75 kg

DRUGS (4)
  1. EXELON PATCH [Suspect]
     Active Substance: RIVASTIGMINE
     Dosage: 4.6 MG, QD
     Route: 062
  2. EBIX [Concomitant]
     Active Substance: MEMANTINE HYDROCHLORIDE
     Dosage: UNK UKN, UNK
  3. EXELON PATCH [Suspect]
     Active Substance: RIVASTIGMINE
     Dosage: 9.5 MG, QD
     Route: 062
  4. EXELON PATCH [Suspect]
     Active Substance: RIVASTIGMINE
     Indication: DEMENTIA ALZHEIMER^S TYPE
     Dosage: 4.6 MG, QD
     Route: 062
     Dates: start: 201405

REACTIONS (6)
  - Pneumonia [Unknown]
  - Dizziness [Unknown]
  - Malaise [Unknown]
  - Dry mouth [Unknown]
  - Cough [Unknown]
  - Wrong technique in drug usage process [Unknown]
